FAERS Safety Report 18153564 (Version 1)
Quarter: 2020Q3

REPORT INFORMATION
  Report Type: Spontaneous
  Country: US (occurrence: US)
  Receive Date: 20200816
  Receipt Date: 20200816
  Transmission Date: 20201103
  Serious: No
  Sender: FDA-Public Use
  Company Number: US-ASTRAZENECA-2020SF00802

PATIENT
  Sex: Male
  Weight: 83.9 kg

DRUGS (8)
  1. BRILINTA [Suspect]
     Active Substance: TICAGRELOR
     Indication: CORONARY ARTERY OCCLUSION
     Dosage: 90.0MG AS REQUIRED
     Route: 048
  2. LISINOPRIL. [Suspect]
     Active Substance: LISINOPRIL
     Indication: HYPERTENSION
     Route: 048
  3. BRILINTA [Suspect]
     Active Substance: TICAGRELOR
     Indication: STENT PLACEMENT
     Route: 048
     Dates: start: 201902
  4. BRILINTA [Suspect]
     Active Substance: TICAGRELOR
     Indication: STENT PLACEMENT
     Dosage: 90.0MG AS REQUIRED
     Route: 048
  5. BRILINTA [Suspect]
     Active Substance: TICAGRELOR
     Indication: MYOCARDIAL INFARCTION
     Route: 048
     Dates: start: 201902
  6. BRILINTA [Suspect]
     Active Substance: TICAGRELOR
     Indication: CORONARY ARTERY OCCLUSION
     Route: 048
     Dates: start: 201902
  7. BRILINTA [Suspect]
     Active Substance: TICAGRELOR
     Indication: MYOCARDIAL INFARCTION
     Dosage: 90.0MG AS REQUIRED
     Route: 048
  8. LISINOPRIL/WATER PILL [Concomitant]
     Indication: BLOOD PRESSURE MEASUREMENT
     Dosage: 20/25MG DAILY

REACTIONS (2)
  - Product dose omission issue [Unknown]
  - Dyspnoea [Not Recovered/Not Resolved]
